FAERS Safety Report 7113059-8 (Version None)
Quarter: 2010Q4

REPORT INFORMATION
  Report Type: 
  Country: None (occurrence: None)
  Receive Date: 20101119
  Receipt Date: 20101115
  Transmission Date: 20110411
  Serious: Yes (Hospitalization)
  Sender: FDA-Public Use
  Company Number: JP-BAYER-201015772BYL

PATIENT
  Age: 65 Year
  Sex: Male
  Weight: 75 kg

DRUGS (8)
  1. NEXAVAR [Suspect]
     Indication: HEPATIC NEOPLASM MALIGNANT
     Dosage: UNIT DOSE: 200 MG
     Route: 048
     Dates: start: 20100327
  2. NEXAVAR [Suspect]
     Dosage: UNIT DOSE: 200 MG
     Route: 048
     Dates: start: 20100406, end: 20100720
  3. NEXAVAR [Suspect]
     Dosage: UNIT DOSE: 200 MG
     Route: 048
     Dates: start: 20100809, end: 20101109
  4. UREPEARL [Concomitant]
     Indication: PALMAR-PLANTAR ERYTHRODYSAESTHESIA SYNDROME
     Route: 061
     Dates: start: 20100326
  5. UREPEARL [Concomitant]
     Route: 061
     Dates: start: 20100326
  6. BARACLUDE [Concomitant]
     Route: 048
     Dates: start: 20091021
  7. URSO 250 [Concomitant]
     Route: 048
     Dates: start: 20021219
  8. AMLODIPINE [Concomitant]
     Route: 048
     Dates: start: 20100326

REACTIONS (3)
  - ALOPECIA [None]
  - GASTRIC ULCER [None]
  - PALMAR-PLANTAR ERYTHRODYSAESTHESIA SYNDROME [None]
